FAERS Safety Report 24208277 (Version 2)
Quarter: 2024Q3

REPORT INFORMATION
  Report Type: Spontaneous
  Country: PT (occurrence: PT)
  Receive Date: 20240814
  Receipt Date: 20240826
  Transmission Date: 20241017
  Serious: Yes (Death)
  Sender: GILEAD
  Company Number: None

PATIENT
  Age: 82 Year
  Sex: Female

DRUGS (13)
  1. VEKLURY [Suspect]
     Active Substance: REMDESIVIR
     Indication: Product used for unknown indication
     Dosage: 200 MG FIRST DOSE; 100 MG REMAINING 4 DOSES
     Route: 042
     Dates: start: 20220120, end: 20220124
  2. METHYLPREDNISOLONE [Concomitant]
     Active Substance: METHYLPREDNISOLONE
  3. IPRATROPIUM BROMIDE [Concomitant]
     Active Substance: IPRATROPIUM BROMIDE\IPRATROPIUM BROMIDE ANHYDROUS
  4. CARVEDILOL [Concomitant]
     Active Substance: CARVEDILOL
  5. METOCLOPRAMIDE [Concomitant]
     Active Substance: METOCLOPRAMIDE
  6. RISPERIDONE [Concomitant]
     Active Substance: RISPERIDONE
  7. ALBUTEROL [Concomitant]
     Active Substance: ALBUTEROL
  8. ENOXAPARIN [Concomitant]
     Active Substance: ENOXAPARIN
  9. LACTULOSE [Concomitant]
     Active Substance: LACTULOSE
  10. BUTYLSCOPOLAMINE [Concomitant]
     Active Substance: BUTYLSCOPOLAMINE
  11. PANTOPRAZOLE [Concomitant]
     Active Substance: PANTOPRAZOLE
  12. FUROSEMIDE [Concomitant]
     Active Substance: FUROSEMIDE
  13. OXYGEN [Concomitant]
     Active Substance: OXYGEN

REACTIONS (1)
  - Drug ineffective [Fatal]

NARRATIVE: CASE EVENT DATE: 20220131
